FAERS Safety Report 7761591-6 (Version None)
Quarter: 2011Q3

REPORT INFORMATION
  Report Type: 
  Country: None (occurrence: None)
  Receive Date: 20110919
  Receipt Date: 20110919
  Transmission Date: 20111222
  Serious: Yes (Other)
  Sender: FDA-Public Use
  Company Number: None

PATIENT
  Sex: Female

DRUGS (1)
  1. RIBAVIRIN [Suspect]
     Dosage: 400MG/600MG AM/PM PO
     Route: 048
     Dates: start: 20110911, end: 20110911

REACTIONS (2)
  - URTICARIA [None]
  - PHARYNGEAL DISORDER [None]
